FAERS Safety Report 26198681 (Version 1)
Quarter: 2025Q4

REPORT INFORMATION
  Report Type: Report from Study
  Country: MX (occurrence: MX)
  Receive Date: 20251224
  Receipt Date: 20251224
  Transmission Date: 20260118
  Serious: Yes (Hospitalization, Other)
  Sender: ABBVIE
  Company Number: MX-ABBVIE-6455115

PATIENT
  Age: 57 Year
  Sex: Male
  Weight: 57 kg

DRUGS (2)
  1. VENCLEXTA [Suspect]
     Active Substance: VENETOCLAX
     Indication: Chronic lymphocytic leukaemia
     Route: 048
     Dates: start: 20250902, end: 20250904
  2. IBRUTINIB [Suspect]
     Active Substance: IBRUTINIB
     Indication: Product used for unknown indication
     Route: 048

REACTIONS (6)
  - Pneumonia [Recovering/Resolving]
  - Leukaemia [Recovering/Resolving]
  - Ear inflammation [Recovered/Resolved]
  - Diarrhoea [Recovered/Resolved]
  - Bacterial infection [Unknown]
  - Fibrosis [Recovering/Resolving]

NARRATIVE: CASE EVENT DATE: 20250101
